FAERS Safety Report 20896803 (Version 1)
Quarter: 2022Q2

REPORT INFORMATION
  Report Type: Spontaneous
  Country: US (occurrence: None)
  Receive Date: 20220531
  Receipt Date: 20220531
  Transmission Date: 20220721
  Serious: Yes (Hospitalization)
  Sender: FDA-Public Use
  Company Number: None

PATIENT
  Sex: Female

DRUGS (36)
  1. TALTZ [Suspect]
     Active Substance: IXEKIZUMAB
     Indication: Polyarthritis
     Dosage: RX2: INJECT 1 PEN (80 MG) UNDER  THE SKIN (SUBCUTANEOUS INJECTION) ONCE EVERY FOUR WEEKS
     Route: 058
     Dates: start: 20220219
  2. TALTZ [Suspect]
     Active Substance: IXEKIZUMAB
     Dosage: OTHER QUANTITY : 1 PEN (80 MG);?FREQUENCY : MONTHLY;?
     Route: 058
  3. ALBUTEROL [Concomitant]
     Active Substance: ALBUTEROL
  4. ASPIRIN [Concomitant]
     Active Substance: ASPIRIN
  5. ATORVASTATIN [Concomitant]
     Active Substance: ATORVASTATIN
  6. BUMEX [Concomitant]
     Active Substance: BUMETANIDE
  7. CARVEDILOL [Concomitant]
     Active Substance: CARVEDILOL
  8. COSENTYX [Concomitant]
     Active Substance: SECUKINUMAB
  9. CRANBERRY [Concomitant]
     Active Substance: CRANBERRY
  10. DEPO-MEDROL [Concomitant]
     Active Substance: METHYLPREDNISOLONE ACETATE
  11. DEXAMETH PHO [Concomitant]
  12. DILTIAZEM [Concomitant]
     Active Substance: DILTIAZEM
  13. EPINEPHRINE POW [Concomitant]
  14. ERYTHROM ST [Concomitant]
  15. FISH OIL [Concomitant]
     Active Substance: FISH OIL
  16. HYDRALAZINE [Concomitant]
     Active Substance: HYDRALAZINE HYDROCHLORIDE
  17. ACETAMINOPHEN\HYDROCODONE [Concomitant]
     Active Substance: ACETAMINOPHEN\HYDROCODONE
  18. LEVOTHYROXINE [Concomitant]
     Active Substance: LEVOTHYROXINE
  19. MIRENA [Concomitant]
  20. MULTIVIT/FL [Concomitant]
  21. NITRIGLYCERN [Concomitant]
  22. NOVOLOG [Concomitant]
  23. NURTEC ODT [Concomitant]
     Active Substance: RIMEGEPANT SULFATE
  24. OLMESA MEDOX [Concomitant]
  25. OMEPRAZOLE [Concomitant]
  26. OXYBUTYNIN [Concomitant]
     Active Substance: OXYBUTYNIN
  27. PREDNISONE [Concomitant]
  28. PRIMIDONE [Concomitant]
     Active Substance: PRIMIDONE
  29. PROMETHAZINE [Concomitant]
  30. PROVENTIL HFA [Concomitant]
     Active Substance: ALBUTEROL SULFATE
  31. ROSUVASTATIN [Concomitant]
     Active Substance: ROSUVASTATIN
  32. TIZANIDINE [Concomitant]
     Active Substance: TIZANIDINE
  33. TOUJEO SOLO [Concomitant]
  34. VITAMIN C [Concomitant]
     Active Substance: ASCORBIC ACID
  35. VITAMIN D3 [Concomitant]
     Active Substance: CHOLECALCIFEROL
  36. ZETIA [Concomitant]
     Active Substance: EZETIMIBE

REACTIONS (4)
  - Pneumonia [None]
  - Product storage error [None]
  - Diarrhoea [None]
  - Pain [None]
